FAERS Safety Report 23266176 (Version 2)
Quarter: 2023Q4

REPORT INFORMATION
  Report Type: Other
  Country: CA (occurrence: None)
  Receive Date: 20231206
  Receipt Date: 20231206
  Transmission Date: 20240110
  Serious: No
  Sender: FDA-Public Use
  Company Number: CA-ROCHE-3468281

PATIENT
  Sex: Female

DRUGS (1)
  1. OCREVUS [Suspect]
     Active Substance: OCRELIZUMAB
     Indication: Relapsing-remitting multiple sclerosis
     Dosage: THEN 600 MG EVERY 6 MONTHS
     Route: 042
     Dates: start: 20221124

REACTIONS (9)
  - Nasopharyngitis [Unknown]
  - Nausea [Unknown]
  - Hyperhidrosis [Unknown]
  - Diarrhoea [Unknown]
  - Abdominal pain [Unknown]
  - Asthenia [Unknown]
  - Food poisoning [Unknown]
  - Pain [Unknown]
  - SARS-CoV-2 test positive [Unknown]
